FAERS Safety Report 8344929-0 (Version None)
Quarter: 2012Q2

REPORT INFORMATION
  Report Type: 
  Country: None (occurrence: None)
  Receive Date: 20120508
  Receipt Date: 20090420
  Transmission Date: 20120825
  Serious: Yes (Other)
  Sender: FDA-Public Use
  Company Number: US-TEVA-2009004183

PATIENT
  Age: 45 Year
  Sex: Female

DRUGS (1)
  1. AMRIX [Suspect]
     Dosage: 15 MILLIGRAM;
     Route: 048
     Dates: start: 20090416, end: 20090416

REACTIONS (1)
  - ANAPHYLACTIC REACTION [None]
